FAERS Safety Report 15685624 (Version 2)
Quarter: 2018Q4

REPORT INFORMATION
  Report Type: Spontaneous
  Country: PT (occurrence: PT)
  Receive Date: 20181204
  Receipt Date: 20181205
  Transmission Date: 20190205
  Serious: Yes (Life-Threatening)
  Sender: FDA-Public Use
  Company Number: PT-ELI_LILLY_AND_COMPANY-PT201812000438

PATIENT
  Age: 59 Year
  Sex: Male
  Weight: 92 kg

DRUGS (5)
  1. CLEMASTINE [Concomitant]
     Active Substance: CLEMASTINE
     Indication: PREMEDICATION
     Dosage: 2 MG, UNK
     Route: 042
  2. ERBITUX [Suspect]
     Active Substance: CETUXIMAB
     Indication: SQUAMOUS CELL CARCINOMA OF HEAD AND NECK
     Dosage: 800 MG (100 MG/20ML), CYCLICAL
     Route: 042
     Dates: start: 20181115
  3. ONDASETRON [ONDANSETRON] [Concomitant]
     Indication: PREMEDICATION
     Dosage: 16 MG, UNK
  4. NACL [Concomitant]
     Active Substance: SODIUM CHLORIDE
     Indication: PREMEDICATION
     Dosage: 250 ML, UNK
  5. DEXAMETHASONE. [Concomitant]
     Active Substance: DEXAMETHASONE
     Indication: PREMEDICATION
     Dosage: 20 MG, UNK

REACTIONS (5)
  - Flushing [Recovered/Resolved]
  - Oxygen saturation decreased [Recovered/Resolved]
  - Peripheral coldness [Recovered/Resolved]
  - Chills [Recovered/Resolved]
  - Cough [Recovered/Resolved]

NARRATIVE: CASE EVENT DATE: 20181115
